FAERS Safety Report 14998490 (Version 2)
Quarter: 2018Q3

REPORT INFORMATION
  Report Type: Spontaneous
  Country: DE (occurrence: DE)
  Receive Date: 20180612
  Receipt Date: 20180731
  Transmission Date: 20181010
  Serious: Yes (Hospitalization, Disabling, Other)
  Sender: FDA-Public Use
  Company Number: DE-ROCHE-2136700

PATIENT
  Age: 75 Year
  Sex: Female
  Weight: 46 kg

DRUGS (2)
  1. GAZYVARO [Suspect]
     Active Substance: OBINUTUZUMAB
     Indication: B-CELL LYMPHOMA
     Dosage: 5 CYCLES GIVEN
     Route: 042
     Dates: start: 20171214, end: 20180502
  2. BENDAMUSTINE [Suspect]
     Active Substance: BENDAMUSTINE
     Indication: B-CELL LYMPHOMA
     Dosage: DAY 1 AND 2, EVERY 4 WEEKS, 5 CYCLES WERE GIVEN
     Route: 042
     Dates: start: 20171215, end: 20180504

REACTIONS (14)
  - Delirium [Unknown]
  - Cytomegalovirus infection [Recovered/Resolved]
  - Heart rate decreased [Unknown]
  - Pyrexia [Unknown]
  - Cytomegalovirus colitis [Recovered/Resolved]
  - Decreased appetite [Unknown]
  - B-lymphocyte count decreased [Unknown]
  - Immunosuppression [Unknown]
  - CD4 lymphocytes decreased [Unknown]
  - Cardiogenic shock [Recovering/Resolving]
  - Haematochezia [Unknown]
  - Respiratory failure [Unknown]
  - Sepsis [Recovering/Resolving]
  - Diarrhoea [Unknown]

NARRATIVE: CASE EVENT DATE: 201805
